FAERS Safety Report 4596335-2 (Version None)
Quarter: 2005Q1

REPORT INFORMATION
  Report Type: 
  Country: None (occurrence: None)
  Receive Date: 20050302
  Receipt Date: 20050223
  Transmission Date: 20050727
  Serious: Yes (Other)
  Sender: FDA-Public Use
  Company Number: PHBS2005JP02785

PATIENT

DRUGS (3)
  1. VOLTAREN [Suspect]
     Route: 054
  2. LENDORM [Concomitant]
     Route: 048
  3. FERROMIA [Concomitant]
     Route: 048

REACTIONS (1)
  - HAEMOLYSIS [None]
